FAERS Safety Report 12769367 (Version 1)
Quarter: 2016Q3

REPORT INFORMATION
  Report Type: Spontaneous
  Country: US (occurrence: US)
  Receive Date: 20160921
  Receipt Date: 20160921
  Transmission Date: 20161109
  Serious: No
  Sender: FDA-Public Use
  Company Number: US-GLAXOSMITHKLINE-US2016136147

PATIENT
  Age: 57 Year
  Sex: Female

DRUGS (1)
  1. ABREVA [Suspect]
     Active Substance: DOCOSANOL
     Indication: ORAL HERPES
     Dosage: UNK
     Dates: start: 20160816, end: 20160823

REACTIONS (9)
  - Lip haemorrhage [Unknown]
  - Oral discomfort [Unknown]
  - Chapped lips [Unknown]
  - Lip dry [Unknown]
  - Lip injury [Unknown]
  - Lip exfoliation [Unknown]
  - Hypersensitivity [Unknown]
  - Lip swelling [Unknown]
  - Lip disorder [Unknown]

NARRATIVE: CASE EVENT DATE: 20160823
